FAERS Safety Report 12759032 (Version 1)
Quarter: 2016Q3

REPORT INFORMATION
  Report Type: Spontaneous
  Country: US (occurrence: US)
  Receive Date: 20160919
  Receipt Date: 20160919
  Transmission Date: 20161109
  Serious: No
  Sender: FDA-Public Use
  Company Number: US-BAUSCH-BL-2015-027098

PATIENT
  Sex: Male

DRUGS (1)
  1. DIAZGEL [Suspect]
     Active Substance: DIAZEPAM
     Indication: EPILEPSY
     Route: 054

REACTIONS (1)
  - Drug prescribing error [Unknown]
